FAERS Safety Report 24573495 (Version 4)
Quarter: 2024Q4

REPORT INFORMATION
  Report Type: Spontaneous
  Country: CA (occurrence: CA)
  Receive Date: 20241102
  Receipt Date: 20241230
  Transmission Date: 20250115
  Serious: Yes (Other)
  Sender: CELLTRION
  Company Number: CA-PFIZER INC-202400274507

PATIENT

DRUGS (7)
  1. INFLECTRA [Suspect]
     Active Substance: INFLIXIMAB-DYYB
     Indication: Colitis ulcerative
     Dosage: 550 MG, W 0, 2, 6 AND Q8
     Route: 042
     Dates: start: 20240827
  2. INFLECTRA [Suspect]
     Active Substance: INFLIXIMAB-DYYB
     Dosage: 550 MG, W 0, 2, 6 AND Q8
     Route: 042
     Dates: start: 20240911
  3. INFLECTRA [Suspect]
     Active Substance: INFLIXIMAB-DYYB
     Dosage: 550 MG, AFTER 4 WEEKS AND 1 DAY
     Route: 042
     Dates: start: 20241009
  4. INFLECTRA [Suspect]
     Active Substance: INFLIXIMAB-DYYB
     Dosage: 550 MG AFTER 8 WEEKS AND 3 DAYS, (550 MG, W 0, 2, 6 AND Q8)
     Route: 042
     Dates: start: 20241206
  5. MESALAMINE [Concomitant]
     Active Substance: MESALAMINE
     Dosage: UNK
  6. PREDNISONE [Concomitant]
     Active Substance: PREDNISONE
     Dosage: 25 MG
  7. PREDNISONE [Concomitant]
     Active Substance: PREDNISONE
     Dosage: 5 MG
     Dates: start: 20240920

REACTIONS (4)
  - Condition aggravated [Recovering/Resolving]
  - Haemorrhoids [Unknown]
  - Drug level below therapeutic [Unknown]
  - Off label use [Unknown]

NARRATIVE: CASE EVENT DATE: 20240101
